FAERS Safety Report 5576484-2 (Version None)
Quarter: 2007Q4

REPORT INFORMATION
  Report Type: 
  Country: None (occurrence: None)
  Receive Date: 20071228
  Receipt Date: 20071228
  Transmission Date: 20080405
  Serious: Yes (Other)
  Sender: FDA-Public Use
  Company Number: A0700669A

PATIENT
  Age: 57 Year
  Sex: Female

DRUGS (3)
  1. ALLI [Suspect]
     Indication: WEIGHT LOSS DIET
     Route: 048
     Dates: start: 20070615, end: 20070928
  2. MOBIC [Concomitant]
  3. FIORICET [Concomitant]

REACTIONS (2)
  - BREAST CANCER [None]
  - DRUG INEFFECTIVE [None]
